FAERS Safety Report 13732556 (Version 1)
Quarter: 2017Q3

REPORT INFORMATION
  Report Type: Spontaneous
  Country: GB (occurrence: GB)
  Receive Date: 20170707
  Receipt Date: 20170707
  Transmission Date: 20171127
  Serious: Yes (Life-Threatening, Hospitalization, Other)
  Sender: FDA-Public Use
  Company Number: GB-PFIZER INC-2017290127

PATIENT
  Age: 71 Year
  Sex: Female

DRUGS (5)
  1. CIPROFLOXACIN HCL [Suspect]
     Active Substance: CIPROFLOXACIN HYDROCHLORIDE
     Indication: PSEUDOMONAS INFECTION
     Dosage: 500 MG, 2X/DAY
     Route: 048
     Dates: start: 20160327, end: 20160411
  2. BENDROFLUMETHIAZIDE [Concomitant]
     Active Substance: BENDROFLUMETHIAZIDE
     Dosage: 2.5 MG, 1X/DAY (MORNING)
  3. ESOMEPRAZOLE MAGNESIUM. [Concomitant]
     Active Substance: ESOMEPRAZOLE MAGNESIUM
     Dosage: 40 MG, 1X/DAY
  4. VIAZEM XL [Concomitant]
     Active Substance: DILTIAZEM HYDROCHLORIDE
     Dosage: 240 MG, 1X/DAY
  5. FEXOFENADINE [Concomitant]
     Active Substance: FEXOFENADINE\FEXOFENADINE HYDROCHLORIDE
     Dosage: 120 MG, 1X/DAY

REACTIONS (8)
  - Cough [Unknown]
  - Treatment failure [Recovered/Resolved]
  - Pulmonary fibrosis [Recovered/Resolved]
  - Condition aggravated [Recovered/Resolved]
  - Sputum discoloured [Unknown]
  - Drug prescribing error [Unknown]
  - Dyspnoea [Unknown]
  - Malaise [Unknown]

NARRATIVE: CASE EVENT DATE: 20160404
